FAERS Safety Report 8368408-X (Version None)
Quarter: 2012Q2

REPORT INFORMATION
  Report Type: 
  Country: None (occurrence: None)
  Receive Date: 20120517
  Receipt Date: 20120507
  Transmission Date: 20120825
  Serious: Yes (Hospitalization)
  Sender: FDA-Public Use
  Company Number: CO-ELI_LILLY_AND_COMPANY-CO201204007818

PATIENT
  Age: 73 Year
  Sex: Female

DRUGS (3)
  1. FORTEO [Suspect]
     Indication: OSTEOPOROSIS
     Dosage: 20 UG, QD
     Route: 058
     Dates: start: 20120216, end: 20120327
  2. CALCIUM + VITAMIN D [Concomitant]
     Indication: MEDICAL DIET
  3. FORTEO [Suspect]
     Dosage: 20 UG, QD
     Route: 058
     Dates: start: 20120418

REACTIONS (5)
  - DEHYDRATION [None]
  - VOMITING [None]
  - ABDOMINAL PAIN UPPER [None]
  - PERITONITIS [None]
  - APPENDICITIS [None]
